FAERS Safety Report 12482353 (Version 1)
Quarter: 2016Q2

REPORT INFORMATION
  Report Type: Spontaneous
  Country: FR (occurrence: FR)
  Receive Date: 20160620
  Receipt Date: 20160620
  Transmission Date: 20160815
  Serious: Yes (Other)
  Sender: FDA-Public Use
  Company Number: FR-ABBVIE-16P-056-1656551-00

PATIENT
  Age: 30 Year
  Sex: Female

DRUGS (3)
  1. DEPAKINE CHRONO [Suspect]
     Active Substance: VALPROATE SODIUM
     Route: 048
  2. DEPAKINE CHRONO [Suspect]
     Active Substance: VALPROATE SODIUM
     Indication: EPILEPSY
     Route: 048
     Dates: start: 198205, end: 20030207
  3. DEPAKINE CHRONO [Suspect]
     Active Substance: VALPROATE SODIUM
     Route: 048
     Dates: start: 20130310

REACTIONS (11)
  - Colitis [Unknown]
  - Microcytic anaemia [Unknown]
  - Dyspepsia [Unknown]
  - Nausea [Unknown]
  - Blood iron decreased [Unknown]
  - Fatigue [Unknown]
  - Diarrhoea [Unknown]
  - Lymphadenopathy [Unknown]
  - Skin reaction [Unknown]
  - Oesophagitis [Unknown]
  - Gastrointestinal pain [Unknown]

NARRATIVE: CASE EVENT DATE: 20021205
